FAERS Safety Report 20199279 (Version 3)
Quarter: 2022Q1

REPORT INFORMATION
  Report Type: Spontaneous
  Country: JP (occurrence: JP)
  Receive Date: 20211217
  Receipt Date: 20220125
  Transmission Date: 20220423
  Serious: Yes (Other)
  Sender: FDA-Public Use
  Company Number: JP-NOVARTISPH-NVSJ2021JP016870

PATIENT
  Age: 65 Year
  Sex: Male

DRUGS (1)
  1. BEOVU [Suspect]
     Active Substance: BROLUCIZUMAB-DBLL
     Indication: Age-related macular degeneration
     Dosage: 6 MG (RIGHT EYE)
     Route: 031
     Dates: start: 20210803, end: 20210803

REACTIONS (6)
  - Optic neuritis [Recovered/Resolved]
  - Keratic precipitates [Recovered/Resolved]
  - Blindness [Recovered/Resolved]
  - Eye inflammation [Recovered/Resolved]
  - Anterior chamber cell [Recovered/Resolved]
  - Vitreous opacities [Recovered/Resolved]

NARRATIVE: CASE EVENT DATE: 20210815
